FAERS Safety Report 26182223 (Version 1)
Quarter: 2025Q4

REPORT INFORMATION
  Report Type: Spontaneous
  Country: US (occurrence: US)
  Receive Date: 20251221
  Receipt Date: 20251221
  Transmission Date: 20260118
  Serious: No
  Sender: ALEXION PHARMACEUTICALS
  Company Number: US-AstraZeneca-CH-01017473AP

PATIENT
  Sex: Female

DRUGS (1)
  1. BREZTRI [Suspect]
     Active Substance: BUDESONIDE\FORMOTEROL\GLYCOPYRROLATE
     Dosage: 160 MICROGRAM

REACTIONS (10)
  - Device delivery system issue [Unknown]
  - Incorrect dose administered by device [Unknown]
  - Hereditary neuropathic amyloidosis [Unknown]
  - Eye disorder [Unknown]
  - Visual impairment [Unknown]
  - Vision blurred [Unknown]
  - Anxiety [Unknown]
  - Product use issue [Unknown]
  - Sensitivity to weather change [Unknown]
  - Respiratory disorder [Unknown]
